FAERS Safety Report 23036451 (Version 1)
Quarter: 2023Q4

REPORT INFORMATION
  Report Type: Spontaneous
  Country: DE (occurrence: DE)
  Receive Date: 20231006
  Receipt Date: 20231006
  Transmission Date: 20240110
  Serious: Yes (Hospitalization, Other)
  Sender: FDA-Public Use
  Company Number: DE-AUROBINDO-AUR-APL-2023-060135

PATIENT
  Sex: Female
  Weight: 70 kg

DRUGS (11)
  1. ALENDRONIC ACID [Suspect]
     Active Substance: ALENDRONIC ACID
     Indication: Osteoporosis
     Dosage: 1 DOSAGE FORM, EVERY WEEK (1XWEEKLY)
     Route: 048
     Dates: start: 2018, end: 202307
  2. AMLODIPINE [Concomitant]
     Active Substance: AMLODIPINE BESYLATE
     Indication: Hypertension
     Dosage: 1 DOSAGE FORM, ONCE A DAY (1X DAILY IN THE MORNING (1-0-0)))
     Route: 048
  3. CALCIUM [Concomitant]
     Active Substance: CALCIUM
     Indication: Osteoporosis
     Dosage: 1 DOSAGE FORM, ONCE A DAY (1X DAILY IN THE MORNING-6X/WEEK)
     Route: 048
  4. ENOXAPARIN [Concomitant]
     Active Substance: ENOXAPARIN
     Indication: Thrombosis prophylaxis
     Dosage: 1 DOSAGE FORM, ONCE A DAY (1X DAILY IN THE EVENING)
     Route: 065
  5. TORSEMIDE [Concomitant]
     Active Substance: TORSEMIDE
     Indication: Product used for unknown indication
     Dosage: 1 DOSAGE FORM, ONCE A DAY (1X DAILY IN THE MORNING (1-0-0), PAUSED DURING STAY AT HOSPITAL)
     Route: 048
  6. Naloxone hydrochloride;Oxycodone [Concomitant]
     Indication: Pain
     Dosage: 2 DOSAGE FORM, ONCE A DAY (2X DAILY (1X IN THE MORNING/1X IN THE EVENING (1-0-1), ONLY DURING STAY A
     Route: 048
  7. METAMIZOLE [Concomitant]
     Active Substance: METAMIZOLE
     Indication: Pain
     Dosage: 4 DOSAGE FORM, ONCE A DAY (4X DAILY, 1 TABLET EACH IN THE MORNING/MIDDAY/EVENING/AT NIGHT (1-1-1-1))
     Route: 048
  8. PANTOPRAZOLE [Concomitant]
     Active Substance: PANTOPRAZOLE
     Indication: Pain
     Dosage: 1 DOSAGE FORM, ONCE A DAY (1X DAILY IN THE MORNING (1-0-0), ONLY DURING STAY AT HOSPITAL)
     Route: 065
  9. PULVERIL [Concomitant]
     Indication: Product used for unknown indication
     Dosage: UNK
     Route: 065
  10. TELMISARTAN [Concomitant]
     Active Substance: TELMISARTAN
     Indication: Hypertension
     Dosage: 2 DOSAGE FORM, ONCE A DAY (1X IN THE MORNING,1X AT MIDDAY)
     Route: 065
  11. VITAMIN D3 [Concomitant]
     Active Substance: CHOLECALCIFEROL
     Indication: Osteoporosis
     Dosage: 1 DOSAGE FORM (1X IN THE MORNING (EACH MONDAY))
     Route: 065

REACTIONS (2)
  - Atypical femur fracture [Not Recovered/Not Resolved]
  - Accident [Not Recovered/Not Resolved]

NARRATIVE: CASE EVENT DATE: 20190101
